FAERS Safety Report 5968316-5 (Version None)
Quarter: 2008Q4

REPORT INFORMATION
  Report Type: 
  Country: None (occurrence: None)
  Receive Date: 20081126
  Receipt Date: 20081119
  Transmission Date: 20090506
  Serious: No
  Sender: FDA-Public Use
  Company Number: US-JNJFOC-20081105011

PATIENT
  Sex: Female
  Weight: 68.04 kg

DRUGS (4)
  1. FENTANYL TRANSDERMAL SYSTEM [Suspect]
     Indication: FIBROMYALGIA
     Route: 062
  2. OXYCODONE HCL [Concomitant]
     Indication: FIBROMYALGIA
     Dosage: 10-325 MG, EVERY 1 HOUR
     Route: 048
     Dates: start: 20081001
  3. AMRIX [Concomitant]
     Indication: FIBROMYALGIA
     Route: 048
     Dates: start: 20080619
  4. AMITRIPTYLINE HCL [Concomitant]
     Indication: FIBROMYALGIA
     Route: 048
     Dates: start: 20080101

REACTIONS (1)
  - DRUG DOSE OMISSION [None]
